FAERS Safety Report 4802589-7 (Version None)
Quarter: 2005Q4

REPORT INFORMATION
  Report Type: 
  Country: None (occurrence: None)
  Receive Date: 20051014
  Receipt Date: 20050311
  Transmission Date: 20060501
  Serious: Yes (Hospitalization, Other)
  Sender: FDA-Public Use
  Company Number: 2005026648

PATIENT
  Sex: Male

DRUGS (2)
  1. NEURONTIN [Suspect]
     Indication: ILL-DEFINED DISORDER
     Dates: start: 19980101, end: 20010101
  2. MIRTAZAPINE [Concomitant]

REACTIONS (4)
  - INSOMNIA [None]
  - LOSS OF EMPLOYMENT [None]
  - MAJOR DEPRESSION [None]
  - SUICIDAL IDEATION [None]
